FAERS Safety Report 15769302 (Version 2)
Quarter: 2018Q4

REPORT INFORMATION
  Report Type: Report from Study
  Country: US (occurrence: US)
  Receive Date: 20181228
  Receipt Date: 20181231
  Transmission Date: 20190205
  Serious: Yes (Other)
  Sender: FDA-Public Use
  Company Number: US-ROCHE-2232714

PATIENT
  Age: 71 Year
  Sex: Female
  Weight: 78.09 kg

DRUGS (1)
  1. OCREVUS [Suspect]
     Active Substance: OCRELIZUMAB
     Indication: RELAPSING-REMITTING MULTIPLE SCLEROSIS
     Route: 065
     Dates: start: 201807

REACTIONS (3)
  - Nasopharyngitis [Unknown]
  - Diarrhoea haemorrhagic [Not Recovered/Not Resolved]
  - Weight increased [Unknown]

NARRATIVE: CASE EVENT DATE: 201811
